FAERS Safety Report 6203742-0 (Version None)
Quarter: 2009Q2

REPORT INFORMATION
  Report Type: 
  Country: None (occurrence: None)
  Receive Date: 20090526
  Receipt Date: 20090526
  Transmission Date: 20091009
  Serious: Yes (Other)
  Sender: FDA-Public Use
  Company Number: None

PATIENT
  Age: 83 Year
  Sex: Male
  Weight: 77.1115 kg

DRUGS (1)
  1. NIACIN [Suspect]
     Dosage: 1 CAPULE PER DAY 1 CAPSULE PER DAY PO
     Route: 048
     Dates: start: 20090403, end: 20090518

REACTIONS (12)
  - ABDOMINAL PAIN UPPER [None]
  - ARTHRALGIA [None]
  - CHILLS [None]
  - CONSTIPATION [None]
  - DIARRHOEA [None]
  - FLATULENCE [None]
  - HYPERHIDROSIS [None]
  - HYPERSOMNIA [None]
  - MUSCULOSKELETAL PAIN [None]
  - MYALGIA [None]
  - PRODUCT TASTE ABNORMAL [None]
  - PYREXIA [None]
